FAERS Safety Report 20345140 (Version 2)
Quarter: 2022Q1

REPORT INFORMATION
  Report Type: Spontaneous
  Country: US (occurrence: US)
  Receive Date: 20220118
  Receipt Date: 20220203
  Transmission Date: 20220424
  Serious: No
  Sender: FDA-Public Use
  Company Number: US-LUPIN PHARMACEUTICALS INC.-2022-00148

PATIENT
  Sex: Female

DRUGS (3)
  1. ALBUTEROL SULFATE [Suspect]
     Active Substance: ALBUTEROL SULFATE
     Indication: Product used for unknown indication
     Dosage: UNK 2 PUFFS AS NEEDED, MAX OF 4 TIMES DAILY
  2. ALBUTEROL SULFATE [Suspect]
     Active Substance: ALBUTEROL SULFATE
     Dosage: UNK 2 PUFFS AS NEEDED, MAX OF 4 TIMES DAILY
  3. ALBUTEROL SULFATE [Suspect]
     Active Substance: ALBUTEROL SULFATE
     Dosage: UNK 2 PUFFS AS NEEDED, MAX OF 4 TIMES DAILY

REACTIONS (3)
  - Device delivery system issue [Unknown]
  - Product packaging quantity issue [Unknown]
  - No adverse event [Unknown]
